FAERS Safety Report 6956552-0 (Version None)
Quarter: 2010Q3

REPORT INFORMATION
  Report Type: 
  Country: None (occurrence: None)
  Receive Date: 20100826
  Receipt Date: 20100818
  Transmission Date: 20110219
  Serious: Yes (Hospitalization, Other)
  Sender: FDA-Public Use
  Company Number: 014144

PATIENT
  Age: 4 Year
  Sex: Female

DRUGS (1)
  1. KEPPRA [Suspect]
     Indication: EPILEPSY
     Dosage: (75 MG ORAL)
     Route: 048
     Dates: start: 20100616, end: 20100101

REACTIONS (8)
  - CONDITION AGGRAVATED [None]
  - CYANOSIS [None]
  - EPILEPSY [None]
  - HYPOTONIA [None]
  - PALLOR [None]
  - RESPIRATORY DISORDER [None]
  - SOMNOLENCE [None]
  - SYNCOPE [None]
